FAERS Safety Report 18493233 (Version 7)
Quarter: 2022Q2

REPORT INFORMATION
  Report Type: Report from Study
  Country: CA (occurrence: CA)
  Receive Date: 20201111
  Receipt Date: 20220401
  Transmission Date: 20220721
  Serious: Yes (Other)
  Sender: FDA-Public Use
  Company Number: CA-BAUSCH-BL-2020-032588

PATIENT
  Age: 55 Year
  Sex: Female

DRUGS (16)
  1. SILIQ [Suspect]
     Active Substance: BRODALUMAB
     Indication: Psoriasis
     Dosage: 210 MG/ 1.5 ML, WEEKLY (WEEK 0 ,1 AND 2); CHANGING TO EVERY 2 WEEKS DOSING STARTING FROM 27/NOV/2020
     Route: 058
     Dates: start: 20201030, end: 20201113
  2. SILIQ [Suspect]
     Active Substance: BRODALUMAB
     Dosage: 210 MG/ 1.5 ML, Q 2 WEEKS
     Route: 058
     Dates: start: 2020
  3. SILIQ [Suspect]
     Active Substance: BRODALUMAB
     Dosage: 210 MG/ 1.5 ML, Q 2 WEEKS
     Route: 058
     Dates: start: 2022, end: 2022
  4. SILIQ [Suspect]
     Active Substance: BRODALUMAB
     Dosage: 210 MG/ 1.5 ML, Q 2 WEEKS
     Route: 058
     Dates: start: 2022
  5. RAMIPRIL [Concomitant]
     Active Substance: RAMIPRIL
     Indication: Product used for unknown indication
  6. TOUJEO [Concomitant]
     Active Substance: INSULIN GLARGINE
     Indication: Product used for unknown indication
     Dosage: INSULIN
  7. HUMALOG [Concomitant]
     Active Substance: INSULIN LISPRO
     Indication: Product used for unknown indication
  8. PREGABALIN [Concomitant]
     Active Substance: PREGABALIN
     Indication: Product used for unknown indication
  9. CITALOPRAM [Concomitant]
     Active Substance: CITALOPRAM HYDROBROMIDE
     Indication: Product used for unknown indication
  10. NAPROXEN [Concomitant]
     Active Substance: NAPROXEN
     Indication: Product used for unknown indication
  11. PANTOPRAZOLE [Concomitant]
     Active Substance: PANTOPRAZOLE
     Indication: Product used for unknown indication
  12. LIPITOR [Concomitant]
     Active Substance: ATORVASTATIN CALCIUM
     Indication: Product used for unknown indication
  13. DOMPERIDONE [Concomitant]
     Active Substance: DOMPERIDONE
     Indication: Product used for unknown indication
  14. VITAMIN D [Concomitant]
     Active Substance: VITAMIN D NOS
     Indication: Product used for unknown indication
  15. CANNABIDIOL\HERBALS [Concomitant]
     Active Substance: CANNABIDIOL\HERBALS
     Indication: Arthritis
  16. CANNABIDIOL\HERBALS [Concomitant]
     Active Substance: CANNABIDIOL\HERBALS
     Indication: Neuropathy peripheral

REACTIONS (12)
  - Gait disturbance [Recovered/Resolved]
  - Abdominal discomfort [Recovered/Resolved]
  - Psoriasis [Unknown]
  - Fibromyalgia [Unknown]
  - Pain [Recovered/Resolved]
  - Pain in extremity [Recovered/Resolved]
  - Injection site pain [Recovered/Resolved]
  - Nausea [Recovered/Resolved]
  - Patient dissatisfaction with treatment [Unknown]
  - Product administration error [Unknown]
  - Product administered at inappropriate site [Unknown]
  - Therapy interrupted [Unknown]

NARRATIVE: CASE EVENT DATE: 20200101
